FAERS Safety Report 7287140-7 (Version None)
Quarter: 2010Q4

REPORT INFORMATION
  Report Type: 
  Country: None (occurrence: None)
  Receive Date: 20101220
  Receipt Date: 20100104
  Transmission Date: 20110411
  Serious: Yes (Hospitalization)
  Sender: FDA-Public Use
  Company Number: 201001014

PATIENT
  Age: 65 Year
  Sex: Male

DRUGS (2)
  1. TESTIM [Suspect]
     Indication: HYPOGONADISM
     Dosage: 100 MG, TRANSDERMAL
     Route: 062
     Dates: start: 20081216
  2. DIURETIC (HYDROCHLOROTHIAZIDE) [Concomitant]

REACTIONS (1)
  - CARDIAC FAILURE CONGESTIVE [None]
